FAERS Safety Report 11456183 (Version 1)
Quarter: 2015Q3

REPORT INFORMATION
  Report Type: Spontaneous
  Country: SE (occurrence: SE)
  Receive Date: 20150903
  Receipt Date: 20150903
  Transmission Date: 20151125
  Serious: Yes (Hospitalization)
  Sender: FDA-Public Use
  Company Number: SE-TEVA-589545ACC

PATIENT
  Age: 60 Year
  Sex: Male

DRUGS (1)
  1. ALFUZOSIN TEVA [Suspect]
     Active Substance: ALFUZOSIN
     Indication: DYSURIA
     Dates: start: 20150617, end: 20150618

REACTIONS (5)
  - Swelling face [Recovered/Resolved]
  - Urticaria [Recovered/Resolved]
  - Syncope [Recovered/Resolved]
  - Erythema [Recovered/Resolved]
  - Lip swelling [Recovered/Resolved]

NARRATIVE: CASE EVENT DATE: 20150618
